FAERS Safety Report 9738449 (Version 1)
Quarter: 2013Q4

REPORT INFORMATION
  Report Type: Spontaneous
  Country: ME (occurrence: ME)
  Receive Date: 20131208
  Receipt Date: 20131208
  Transmission Date: 20140711
  Serious: Yes (Death, Hospitalization)
  Sender: FDA-Public Use
  Company Number: ME-ROCHE-1314220

PATIENT
  Age: 60 Year
  Sex: Male

DRUGS (3)
  1. MIRCERA [Suspect]
     Indication: NEPHROGENIC ANAEMIA
     Route: 058
     Dates: start: 201307, end: 201310
  2. NIFELAT [Concomitant]
  3. DICLOFENAC [Concomitant]

REACTIONS (1)
  - Granulomatosis with polyangiitis [Fatal]
